FAERS Safety Report 14505393 (Version 1)
Quarter: 2018Q1

REPORT INFORMATION
  Report Type: Spontaneous
  Country: US (occurrence: US)
  Receive Date: 20180208
  Receipt Date: 20180208
  Transmission Date: 20180509
  Serious: Yes (Hospitalization)
  Sender: FDA-Public Use
  Company Number: US-PURDUE PHARMA-USA-2018-0142655

PATIENT
  Age: 88 Year
  Sex: Female
  Weight: 40.82 kg

DRUGS (1)
  1. HYDROMORPHONE TABLET (RHODES) [Suspect]
     Active Substance: HYDROMORPHONE
     Indication: PAIN
     Dosage: 4 MG, Q6H
     Route: 048
     Dates: start: 2016

REACTIONS (6)
  - Blood sodium decreased [Unknown]
  - Abdominal pain [Unknown]
  - Renal failure [Unknown]
  - Hyporesponsive to stimuli [Unknown]
  - Asthenia [Not Recovered/Not Resolved]
  - Nausea [Not Recovered/Not Resolved]

NARRATIVE: CASE EVENT DATE: 20180130
